FAERS Safety Report 5167609-1 (Version None)
Quarter: 2006Q4

REPORT INFORMATION
  Report Type: 
  Country: None (occurrence: None)
  Receive Date: 20060919
  Receipt Date: 20060726
  Transmission Date: 20070319
  Serious: No
  Sender: FDA-Public Use
  Company Number: BDI-008461

PATIENT
  Age: 31 Year
  Sex: Female

DRUGS (2)
  1. MULTIHANCE [Suspect]
     Indication: HYPERPITUITARISM
     Dosage: 10 ML ONCE IV
     Route: 042
     Dates: start: 20060713, end: 20060713
  2. MULTIHANCE [Suspect]
     Indication: NUCLEAR MAGNETIC RESONANCE IMAGING
     Dosage: 10 ML ONCE IV
     Route: 042
     Dates: start: 20060713, end: 20060713

REACTIONS (2)
  - PRURITUS [None]
  - URTICARIA [None]
